FAERS Safety Report 10560444 (Version 1)
Quarter: 2014Q4

REPORT INFORMATION
  Report Type: Spontaneous
  Country: US (occurrence: US)
  Receive Date: 20141103
  Receipt Date: 20141103
  Transmission Date: 20150529
  Serious: Yes (Hospitalization, Other)
  Sender: FDA-Public Use
  Company Number: US-PFIZER INC-2014301017

PATIENT
  Age: 59 Year
  Sex: Female

DRUGS (3)
  1. WARFARIN [Suspect]
     Active Substance: WARFARIN
     Dosage: UNK
  2. CELEBREX [Suspect]
     Active Substance: CELECOXIB
     Dosage: UNK
  3. VICODIN [Suspect]
     Active Substance: ACETAMINOPHEN\HYDROCODONE BITARTRATE
     Dosage: UNK

REACTIONS (7)
  - Intervertebral disc protrusion [Unknown]
  - Sinusitis [Unknown]
  - Dehydration [Unknown]
  - Epistaxis [Unknown]
  - Drug level changed [Unknown]
  - Haemorrhage [Unknown]
  - Inflammation [Unknown]
